FAERS Safety Report 8396198-3 (Version None)
Quarter: 2012Q2

REPORT INFORMATION
  Report Type: 
  Country: None (occurrence: None)
  Receive Date: 20120530
  Receipt Date: 20120522
  Transmission Date: 20120825
  Serious: Yes (Hospitalization)
  Sender: FDA-Public Use
  Company Number: FR-GLAXOSMITHKLINE-B0802895A

PATIENT
  Sex: Female

DRUGS (10)
  1. OXAZEPAM [Concomitant]
     Route: 065
  2. FUROSEMIDE [Concomitant]
     Route: 065
  3. ENDOTELON [Concomitant]
     Route: 065
  4. TRANXENE [Concomitant]
     Route: 065
  5. CLINDAMYCIN HCL [Suspect]
     Indication: BETA HAEMOLYTIC STREPTOCOCCAL INFECTION
     Dosage: 1200MG PER DAY
     Route: 048
     Dates: start: 20120319
  6. LAMICTAL [Suspect]
     Indication: EPILEPSY
     Dosage: 100MG TWICE PER DAY
     Route: 048
     Dates: start: 20000101
  7. RIFADIN [Suspect]
     Indication: BETA HAEMOLYTIC STREPTOCOCCAL INFECTION
     Dosage: 1200MG ALTERNATE DAYS
     Route: 048
     Dates: start: 20120319
  8. LEVOTHYROXINE SODIUM [Concomitant]
     Route: 065
  9. SINGULAIR [Concomitant]
     Route: 065
  10. LYRICA [Suspect]
     Indication: PRODUCT USED FOR UNKNOWN INDICATION
     Dosage: 75MG TWICE PER DAY
     Route: 065

REACTIONS (6)
  - STATUS EPILEPTICUS [None]
  - HALLUCINATION [None]
  - MUTISM [None]
  - CONFUSIONAL STATE [None]
  - DELIRIUM [None]
  - DISORIENTATION [None]
